FAERS Safety Report 15546137 (Version 1)
Quarter: 2018Q4

REPORT INFORMATION
  Report Type: Spontaneous
  Country: FR (occurrence: FR)
  Receive Date: 20181024
  Receipt Date: 20181024
  Transmission Date: 20190205
  Serious: Yes (Hospitalization, Other)
  Sender: FDA-Public Use
  Company Number: PHHY2018FR132143

PATIENT
  Age: 14 Year
  Sex: Female

DRUGS (4)
  1. PARACETAMOL [Suspect]
     Active Substance: ACETAMINOPHEN
     Indication: SUICIDE ATTEMPT
     Dosage: UNK
     Route: 065
  2. EBASTINE [Suspect]
     Active Substance: EBASTINE
     Indication: SUICIDE ATTEMPT
     Dosage: UNK
     Route: 065
  3. LANSOPRAZOLE. [Suspect]
     Active Substance: LANSOPRAZOLE
     Indication: SUICIDE ATTEMPT
     Dosage: UNK
     Route: 065
  4. TRAMADOL. [Suspect]
     Active Substance: TRAMADOL
     Indication: SUICIDE ATTEMPT
     Dosage: UNK
     Route: 065

REACTIONS (4)
  - Intentional overdose [Recovered/Resolved]
  - Suicide attempt [Recovered/Resolved]
  - Generalised tonic-clonic seizure [Recovered/Resolved]
  - Product use issue [Recovered/Resolved]
